FAERS Safety Report 13086019 (Version 2)
Quarter: 2017Q1

REPORT INFORMATION
  Report Type: Report from Study
  Country: US (occurrence: US)
  Receive Date: 20170104
  Receipt Date: 20170112
  Transmission Date: 20170428
  Serious: Yes (Hospitalization)
  Sender: FDA-Public Use
  Company Number: US-GILEAD-2016-0247230

PATIENT
  Age: 59 Year
  Sex: Male
  Weight: 86.5 kg

DRUGS (1)
  1. AMBRISENTAN [Suspect]
     Active Substance: AMBRISENTAN
     Indication: LIVER FUNCTION TEST INCREASED
     Dosage: 5 MG, UNK
     Route: 048
     Dates: start: 20161115, end: 20161227

REACTIONS (4)
  - Liver function test increased [Unknown]
  - Pain [Unknown]
  - Drug abuse [Unknown]
  - Off label use [Recovered/Resolved]

NARRATIVE: CASE EVENT DATE: 20161115
